FAERS Safety Report 7804084-X (Version None)
Quarter: 2011Q4

REPORT INFORMATION
  Report Type: 
  Country: None (occurrence: None)
  Receive Date: 20111010
  Receipt Date: 20111004
  Transmission Date: 20120403
  Serious: Yes (Congenital Anomaly, Other)
  Sender: FDA-Public Use
  Company Number: US-PFIZER INC-2011218694

PATIENT
  Sex: Female
  Weight: 3 kg

DRUGS (1)
  1. SERTRALINE HYDROCHLORIDE [Suspect]
     Dosage: 50 MG ONE TABLET DAILY
     Route: 064

REACTIONS (12)
  - VENTRICULAR SEPTAL DEFECT [None]
  - AORTIC VALVE STENOSIS [None]
  - ATRIAL SEPTAL DEFECT [None]
  - DILATATION VENTRICULAR [None]
  - HEART DISEASE CONGENITAL [None]
  - JAUNDICE NEONATAL [None]
  - DEVELOPMENTAL DELAY [None]
  - TORTICOLLIS [None]
  - COARCTATION OF THE AORTA [None]
  - HYPERTENSION [None]
  - MATERNAL EXPOSURE DURING PREGNANCY [None]
  - PATENT DUCTUS ARTERIOSUS [None]
